FAERS Safety Report 24767153 (Version 1)
Quarter: 2024Q4

REPORT INFORMATION
  Report Type: Spontaneous
  Country: FR (occurrence: FR)
  Receive Date: 20241223
  Receipt Date: 20241223
  Transmission Date: 20250115
  Serious: Yes (Hospitalization)
  Sender: MYLAN
  Company Number: None

PATIENT
  Age: 29 Year
  Sex: Male

DRUGS (5)
  1. BUPRENORPHINE [Suspect]
     Active Substance: BUPRENORPHINE
     Indication: Product used for unknown indication
     Dosage: UNK (BUPRENORPHINE ?STREET?: BETWEEN 4 AND 6MG/D ON HEROIN-FREE DAYS  )
     Route: 065
  2. HEROIN [Suspect]
     Active Substance: DIAMORPHINE
     Indication: Product used for unknown indication
     Dosage: 1 GRAM, QD (CURRENTLY 1G/D WHEN BUPRENORPHINE IS NOT AVAILABLE )
     Route: 045
     Dates: start: 2017
  3. MIDOMAFETAMINE [Suspect]
     Active Substance: MIDOMAFETAMINE
     Indication: Product used for unknown indication
     Dosage: UNK
     Route: 045
     Dates: start: 2013
  4. COCAINE [Suspect]
     Active Substance: COCAINE
     Indication: Product used for unknown indication
     Dosage: UNK
     Route: 045
     Dates: start: 2013, end: 2015
  5. COCAINE [Suspect]
     Active Substance: COCAINE
     Dosage: UNK (2 TO 3 GRAMS PER DAY  )
     Route: 055
     Dates: start: 2015

REACTIONS (5)
  - Drug abuse [Not Recovered/Not Resolved]
  - Gun shot wound [Recovering/Resolving]
  - Radius fracture [Recovering/Resolving]
  - Tendon injury [Recovering/Resolving]
  - Peripheral nerve injury [Recovering/Resolving]

NARRATIVE: CASE EVENT DATE: 20230928
